FAERS Safety Report 25847984 (Version 1)
Quarter: 2025Q3

REPORT INFORMATION
  Report Type: Spontaneous
  Country: US (occurrence: US)
  Receive Date: 20250925
  Receipt Date: 20250925
  Transmission Date: 20251021
  Serious: Yes (Death, Hospitalization)
  Sender: DERMARITE INDUSTRIES
  Company Number: US-DERMARITE INDUSTRIES, LLC.-2025-DER-US000016

PATIENT

DRUGS (7)
  1. PERIGUARD [Suspect]
     Active Substance: PETROLATUM
     Indication: Therapeutic skin care topical
     Route: 061
     Dates: start: 202308
  2. PERIGUARD [Suspect]
     Active Substance: PETROLATUM
     Route: 061
  3. GLIMEPIRIDE [Concomitant]
     Active Substance: GLIMEPIRIDE
     Indication: Product used for unknown indication
  4. IRON [Concomitant]
     Active Substance: IRON
     Indication: Product used for unknown indication
  5. ZOLOFT [Concomitant]
     Active Substance: SERTRALINE HYDROCHLORIDE
     Indication: Product used for unknown indication
  6. SEROQUEL [Concomitant]
     Active Substance: QUETIAPINE FUMARATE
  7. METFORMIN [Concomitant]
     Active Substance: METFORMIN HYDROCHLORIDE
     Indication: Product used for unknown indication

REACTIONS (4)
  - Pneumonia aspiration [Fatal]
  - Sepsis [Unknown]
  - Rash erythematous [Unknown]
  - Hypertension [Unknown]

NARRATIVE: CASE EVENT DATE: 20250501
